FAERS Safety Report 4918241-3 (Version None)
Quarter: 2006Q1

REPORT INFORMATION
  Report Type: 
  Country: None (occurrence: None)
  Receive Date: 20060215
  Receipt Date: 20060206
  Transmission Date: 20060701
  Serious: Yes (Hospitalization)
  Sender: FDA-Public Use
  Company Number: 200515237BCC

PATIENT
  Age: 41 Year
  Weight: 53.0709 kg

DRUGS (1)
  1. ALEVE [Suspect]
     Indication: HEADACHE
     Dosage: 440 MG, BID, ORAL
     Route: 048
     Dates: start: 19970101, end: 20040801

REACTIONS (4)
  - ADENOID CYSTIC CARCINOMA [None]
  - APHAGIA [None]
  - SPEECH DISORDER [None]
  - THROAT CANCER [None]
